FAERS Safety Report 7968842-3 (Version None)
Quarter: 2011Q4

REPORT INFORMATION
  Report Type: 
  Country: None (occurrence: None)
  Receive Date: 20111209
  Receipt Date: 20111201
  Transmission Date: 20120403
  Serious: Yes (Hospitalization)
  Sender: FDA-Public Use
  Company Number: PHHY2011CH105150

PATIENT
  Age: 5 Year
  Sex: Male

DRUGS (3)
  1. DIAZEPAM [Suspect]
     Dosage: 05 MG/KG, UNK
     Route: 054
  2. ACETAMINOPHEN [Concomitant]
     Route: 054
  3. DIAZEPAM [Suspect]
     Dosage: 0.25 MG/KG, UNK
     Route: 054

REACTIONS (4)
  - HYPOVENTILATION [None]
  - ALTERED STATE OF CONSCIOUSNESS [None]
  - RESPIRATORY ARREST [None]
  - RESPIRATORY ACIDOSIS [None]
